FAERS Safety Report 10299185 (Version 4)
Quarter: 2014Q3

REPORT INFORMATION
  Report Type: Spontaneous
  Country: JP (occurrence: JP)
  Receive Date: 20140711
  Receipt Date: 20140813
  Transmission Date: 20150326
  Serious: Yes (Death, Other)
  Sender: FDA-Public Use
  Company Number: JP-BRISTOL-MYERS SQUIBB COMPANY-21194535

PATIENT
  Age: 46 Year
  Sex: Female

DRUGS (3)
  1. ABILIFY [Suspect]
     Active Substance: ARIPIPRAZOLE
     Indication: BIPOLAR DISORDER
     Dosage: ABILIFY 12MG TABS
     Route: 048
     Dates: start: 20140703
  2. REMERON [Suspect]
     Active Substance: MIRTAZAPINE
     Dosage: INTRPTD ON 03JUL14: 15MG?TABS;30MG:15MAY2014-28MAY2014
     Route: 048
     Dates: start: 20140508, end: 20140703
  3. LUNESTA [Concomitant]
     Active Substance: ESZOPICLONE
     Dosage: TABS
     Route: 048
     Dates: start: 20140703

REACTIONS (3)
  - Delirium [Fatal]
  - Cardiac hypertrophy [Unknown]
  - Pyrexia [Unknown]

NARRATIVE: CASE EVENT DATE: 20140704
